FAERS Safety Report 11087624 (Version 4)
Quarter: 2015Q3

REPORT INFORMATION
  Report Type: Report from Study
  Country: FR (occurrence: FR)
  Receive Date: 20150504
  Receipt Date: 20150721
  Transmission Date: 20151125
  Serious: Yes (Hospitalization)
  Sender: FDA-Public Use
  Company Number: FR-BRISTOL-MYERS SQUIBB COMPANY-BMS-2015-020239

PATIENT
  Age: 81 Year
  Sex: Female
  Weight: 59 kg

DRUGS (7)
  1. ABSTRAL [Concomitant]
     Active Substance: FENTANYL CITRATE
     Indication: PAIN
     Dosage: UNK
     Route: 048
     Dates: start: 20150415
  2. NIVOLUMAB [Suspect]
     Active Substance: NIVOLUMAB
     Indication: METASTATIC MALIGNANT MELANOMA
     Dosage: 150 MG, UNK
     Route: 065
     Dates: start: 20150317, end: 20150317
  3. NIVOLUMAB [Suspect]
     Active Substance: NIVOLUMAB
     Dosage: 163 MG, UNK
     Route: 065
     Dates: start: 20150422, end: 20150422
  4. OXYCONTIN [Concomitant]
     Active Substance: OXYCODONE HYDROCHLORIDE
     Indication: PAIN
     Route: 048
  5. NIVOLUMAB [Suspect]
     Active Substance: NIVOLUMAB
     Dosage: 168 MG, UNK
     Route: 065
     Dates: start: 20150401, end: 20150401
  6. NIVOLUMAB [Suspect]
     Active Substance: NIVOLUMAB
     Dosage: 168 MG, UNK
     Route: 065
     Dates: start: 20150506, end: 20150506
  7. YERVOY [Suspect]
     Active Substance: IPILIMUMAB
     Indication: METASTATIC MALIGNANT MELANOMA
     Dosage: UNK
     Route: 042
     Dates: start: 20141201, end: 20150218

REACTIONS (3)
  - Sepsis [Recovering/Resolving]
  - Cauda equina syndrome [Not Recovered/Not Resolved]
  - Hypothyroidism [Not Recovered/Not Resolved]

NARRATIVE: CASE EVENT DATE: 20150311
